FAERS Safety Report 8013858-4 (Version None)
Quarter: 2011Q4

REPORT INFORMATION
  Report Type: 
  Country: None (occurrence: None)
  Receive Date: 20111229
  Receipt Date: 20111223
  Transmission Date: 20120403
  Serious: Yes (Other)
  Sender: FDA-Public Use
  Company Number: US-ROCHE-794438

PATIENT
  Sex: Male
  Weight: 74.91 kg

DRUGS (3)
  1. CLEOCIN HYDROCHLORIDE [Concomitant]
  2. ACCUTANE [Suspect]
     Route: 065
     Dates: start: 19840229, end: 19840618
  3. ACCUTANE [Suspect]
     Indication: ACNE
     Route: 065
     Dates: start: 19821223, end: 19830427

REACTIONS (6)
  - ANAL FISTULA [None]
  - DEPRESSION [None]
  - COLITIS ULCERATIVE [None]
  - EMOTIONAL DISTRESS [None]
  - IRRITABLE BOWEL SYNDROME [None]
  - INFLAMMATORY BOWEL DISEASE [None]
